FAERS Safety Report 6438456-5 (Version None)
Quarter: 2009Q4

REPORT INFORMATION
  Report Type: 
  Country: None (occurrence: None)
  Receive Date: 20091110
  Receipt Date: 20091029
  Transmission Date: 20100525
  Serious: Yes (Other)
  Sender: FDA-Public Use
  Company Number: 2009SP033702

PATIENT
  Age: 50 Year
  Sex: Male

DRUGS (2)
  1. TEMODAL [Suspect]
     Indication: OLIGODENDROGLIOMA
     Dosage: 200 MG/M2;
     Dates: start: 20090925
  2. TEGRETOL [Concomitant]

REACTIONS (3)
  - LYMPHOCYTOSIS [None]
  - NEUTROPHIL PERCENTAGE DECREASED [None]
  - PLATELET COUNT DECREASED [None]
